FAERS Safety Report 6808387-7 (Version None)
Quarter: 2010Q2

REPORT INFORMATION
  Report Type: 
  Country: None (occurrence: None)
  Receive Date: 20100629
  Receipt Date: 20090801
  Transmission Date: 20101027
  Serious: No
  Sender: FDA-Public Use
  Company Number: US-PFIZER INC-2009218229

PATIENT
  Age: 45 Year
  Sex: Female

DRUGS (2)
  1. ZYVOX [Suspect]
     Indication: SKIN INFECTION
     Route: 042
  2. ZYVOX [Suspect]
     Route: 048

REACTIONS (2)
  - MACROCYTOSIS [None]
  - NEUTROPENIA [None]
